FAERS Safety Report 9437508 (Version 1)
Quarter: 2013Q3

REPORT INFORMATION
  Report Type: Report from Study
  Country: US (occurrence: US)
  Receive Date: 20130802
  Receipt Date: 20130802
  Transmission Date: 20140515
  Serious: Yes (Death)
  Sender: FDA-Public Use
  Company Number: US-009507513-1307USA016808

PATIENT
  Age: 53 Year
  Sex: Male

DRUGS (16)
  1. VORINOSTAT [Suspect]
     Indication: GLIOBLASTOMA
     Dosage: 400 MG, UNK
     Route: 048
     Dates: start: 20130626, end: 20130702
  2. VORINOSTAT [Suspect]
     Dosage: 400 MG
     Route: 048
     Dates: start: 20130710, end: 20130716
  3. BEVACIZUMAB [Suspect]
     Dosage: 10 MG/KG  ON DAYS 1 AND 15 OF EACH 28 DAY CYCLE
     Route: 042
     Dates: start: 20130626, end: 20130626
  4. BEVACIZUMAB [Suspect]
     Dosage: 10 MG/KG  ON DAYS 1 AND 15 OF EACH 28 DAY CYCLE
     Route: 042
     Dates: start: 20130710, end: 20130710
  5. LEVETIRACETAM [Concomitant]
     Dosage: 2 TABLET, BID
     Route: 048
  6. DEXAMETHASONE [Concomitant]
     Dosage: UNK, BID
     Route: 048
  7. ALBUTEROL [Concomitant]
     Dosage: 2 PUFFS 4 TIMES DAILY AS NEEDED
  8. PRAVASTATIN SODIUM [Concomitant]
     Dosage: DAILY 1 TABLET
     Route: 048
  9. FENOFIBRATE [Concomitant]
     Dosage: 1 TABLET DAILY
     Route: 048
  10. OMEPRAZOLE [Concomitant]
     Dosage: ONCE DAILY AT BEDTIME
     Route: 048
  11. HYDROCODONE [Concomitant]
     Dosage: EVERY 6 HOURS AS NEEDED
     Route: 048
  12. METFORMIN [Concomitant]
     Dosage: UNK, BID
     Route: 048
  13. GLIPIZIDE [Concomitant]
     Dosage: UNK, ONCE
     Route: 048
  14. VENLAFAXINE HYDROCHLORIDE [Concomitant]
     Dosage: ONCE DAILY
     Route: 048
  15. VITAMIN D (UNSPECIFIED) [Concomitant]
     Dosage: DAILY 1 CAPSULE
     Route: 048
  16. ALPRAZOLAM [Concomitant]
     Dosage: 1 TABE TWICE DAILY AS NEEDED
     Route: 048

REACTIONS (1)
  - Embolism [Fatal]
